FAERS Safety Report 6519070-X (Version None)
Quarter: 2009Q4

REPORT INFORMATION
  Report Type: 
  Country: None (occurrence: None)
  Receive Date: 20091228
  Receipt Date: 20091217
  Transmission Date: 20100525
  Serious: Yes (Hospitalization)
  Sender: FDA-Public Use
  Company Number: JP-ROCHE-607684

PATIENT
  Age: 72 Year
  Sex: Male
  Weight: 79 kg

DRUGS (1)
  1. BEVACIZUMAB [Suspect]
     Indication: NEOVASCULARISATION
     Dosage: ADDITIONAL INDICATION: POLYPOIDAL CHOROIDAL VASCULOPATHY; DOSE REPORTED: 1.25 MG/0.05 ML; INJECTION
     Route: 031
     Dates: start: 20081219, end: 20081219

REACTIONS (2)
  - OCULAR HYPERAEMIA [None]
  - VITREOUS OPACITIES [None]
